FAERS Safety Report 14361377 (Version 4)
Quarter: 2021Q1

REPORT INFORMATION
  Report Type: Spontaneous
  Country: DE (occurrence: DE)
  Receive Date: 20180108
  Receipt Date: 20210114
  Transmission Date: 20210419
  Serious: Yes (Death, Other)
  Sender: FDA-Public Use
  Company Number: DE-DEXPHARM-20171947

PATIENT
  Age: 74 Year
  Sex: Male

DRUGS (14)
  1. ALLO [Interacting]
     Active Substance: ALLOPURINOL
     Route: 048
  2. TOREM [Interacting]
     Active Substance: TORSEMIDE
     Route: 048
  3. DONEPEZIL. [Interacting]
     Active Substance: DONEPEZIL
     Route: 048
  4. CANDECOR COMP [Interacting]
     Active Substance: CANDESARTAN CILEXETIL\HYDROCHLOROTHIAZIDE
     Route: 048
  5. APIDRA [Interacting]
     Active Substance: INSULIN GLULISINE
     Route: 048
  6. FALITHROM [Suspect]
     Active Substance: PHENPROCOUMON
     Route: 048
  7. RISPERDAL [Interacting]
     Active Substance: RISPERIDONE
     Route: 048
  8. METFORMIN [Interacting]
     Active Substance: METFORMIN HYDROCHLORIDE
     Route: 048
  9. TAMSULOSIN [Interacting]
     Active Substance: TAMSULOSIN
     Route: 048
  10. LANTUS [Interacting]
     Active Substance: INSULIN GLARGINE
     Route: 048
  11. SEROQUEL [Interacting]
     Active Substance: QUETIAPINE FUMARATE
     Route: 048
  12. BISOPROLOL [Interacting]
     Active Substance: BISOPROLOL
     Route: 048
  13. LEVOMEPROMAZIN [Interacting]
     Active Substance: LEVOMEPROMAZINE
     Route: 048
  14. SIMVASTATIN. [Interacting]
     Active Substance: SIMVASTATIN
     Route: 048

REACTIONS (4)
  - Renal failure [Unknown]
  - Balance disorder [Unknown]
  - Drug interaction [Unknown]
  - Contraindicated product administered [Unknown]
